FAERS Safety Report 26207490 (Version 1)
Quarter: 2025Q4

REPORT INFORMATION
  Report Type: Spontaneous
  Country: US (occurrence: US)
  Receive Date: 20251229
  Receipt Date: 20251229
  Transmission Date: 20260117
  Serious: No
  Sender: JOHNSON AND JOHNSON
  Company Number: US-VIIV HEALTHCARE-US2025162254

PATIENT
  Age: 35 Year
  Sex: Male

DRUGS (3)
  1. RILPIVIRINE [Suspect]
     Active Substance: RILPIVIRINE
     Indication: HIV infection
     Dosage: UNK
  2. CABOTEGRAVIR [Suspect]
     Active Substance: CABOTEGRAVIR
     Indication: HIV infection
     Dosage: UNK
  3. NANDROLONE [Concomitant]
     Active Substance: NANDROLONE
     Indication: Substance use
     Dosage: UNK

REACTIONS (2)
  - Virologic failure [Recovered/Resolved]
  - Pathogen resistance [Unknown]
